FAERS Safety Report 7942722-1 (Version None)
Quarter: 2011Q4

REPORT INFORMATION
  Report Type: 
  Country: None (occurrence: None)
  Receive Date: 20111122
  Receipt Date: 20110816
  Transmission Date: 20120403
  Serious: Yes (Other)
  Sender: FDA-Public Use
  Company Number: PHEH2011US00648

PATIENT
  Sex: Female

DRUGS (5)
  1. LUNESTA [Concomitant]
  2. ATENOLOL [Concomitant]
  3. GILENYA [Suspect]
     Indication: MULTIPLE SCLEROSIS
     Dosage: 0.5MG/DAILY, ORAL
     Route: 048
     Dates: start: 20110221, end: 20110701
  4. VITAMIN B12 [Concomitant]
  5. VITAMIN D [Concomitant]

REACTIONS (1)
  - BLOOD PRESSURE INCREASED [None]
